FAERS Safety Report 5977468-2 (Version None)
Quarter: 2008Q4

REPORT INFORMATION
  Report Type: 
  Country: None (occurrence: None)
  Receive Date: 20081203
  Receipt Date: 20081128
  Transmission Date: 20090506
  Serious: Yes (Life-Threatening)
  Sender: FDA-Public Use
  Company Number: D0059664A

PATIENT
  Age: 71 Year
  Sex: Male

DRUGS (1)
  1. ARIXTRA [Suspect]
     Dosage: 7.5MG PER DAY
     Route: 058

REACTIONS (5)
  - HEADACHE [None]
  - OFF LABEL USE [None]
  - RESUSCITATION [None]
  - VENTRICULAR FIBRILLATION [None]
  - VISUAL IMPAIRMENT [None]
